FAERS Safety Report 9827674 (Version 2)
Quarter: 2014Q1

REPORT INFORMATION
  Report Type: Spontaneous
  Country: US (occurrence: US)
  Receive Date: 20140117
  Receipt Date: 20140117
  Transmission Date: 20141002
  Serious: Yes (Life-Threatening, Hospitalization, Other)
  Sender: FDA-Public Use
  Company Number: US-GILEAD-2013-0079758

PATIENT
  Age: 55 Year
  Sex: Male
  Weight: 67.12 kg

DRUGS (18)
  1. STRIBILD [Suspect]
     Indication: HIV INFECTION
     Dosage: 1 DF, QD
     Dates: start: 20130611, end: 20130718
  2. EPZICOM [Concomitant]
     Indication: HIV INFECTION
     Dosage: UNK
     Dates: start: 201206, end: 20130611
  3. EPZICOM [Concomitant]
     Dosage: UNK
     Dates: start: 2013
  4. ISENTRESS [Concomitant]
     Indication: HIV INFECTION
     Dosage: UNK
     Dates: start: 201206, end: 20130611
  5. ISENTRESS [Concomitant]
     Dosage: UNK
     Dates: start: 2013
  6. ALLOPURINOL [Concomitant]
     Dosage: 300 MG, UNK
  7. ALBUTEROL                          /00139501/ [Concomitant]
     Dosage: 40 ?G, UNK
  8. ABILIFY [Concomitant]
     Dosage: 5 MG, UNK
  9. ARMODAFINIL [Concomitant]
     Dosage: 250 MG, UNK
  10. NORCO [Concomitant]
  11. LOVAZA [Concomitant]
     Dosage: 1 G, UNK
  12. NORVASC [Concomitant]
     Dosage: 5 MG, UNK
  13. PRAVACHOL [Concomitant]
     Dosage: 20 MG, UNK
  14. VIAGRA [Concomitant]
     Dosage: 50 MG, UNK
  15. PHENERGAN                          /00033002/ [Concomitant]
     Dosage: 25 MG, UNK
  16. ANDROGEL [Concomitant]
     Dosage: 5 G, UNK
  17. TRICOR                             /00499301/ [Concomitant]
     Dosage: 145 MG, UNK
  18. TRAZODONE [Concomitant]
     Dosage: 100 MG, UNK

REACTIONS (3)
  - Renal failure acute [Recovering/Resolving]
  - Blood creatinine increased [Recovering/Resolving]
  - Glomerular filtration rate decreased [Recovering/Resolving]
